FAERS Safety Report 19414990 (Version 1)
Quarter: 2021Q2

REPORT INFORMATION
  Report Type: Spontaneous
  Country: CA (occurrence: CA)
  Receive Date: 20210615
  Receipt Date: 20210615
  Transmission Date: 20210717
  Serious: Yes (Other)
  Sender: FDA-Public Use
  Company Number: CA-ADVANZ PHARMA-202106004190

PATIENT

DRUGS (10)
  1. METHOTREXATE. [Suspect]
     Active Substance: METHOTREXATE
     Dosage: 20 MG, WEEKLY
     Route: 065
  2. HYDROXYCHLOROQUINE [Suspect]
     Active Substance: HYDROXYCHLOROQUINE
     Dosage: UNK
     Route: 065
  3. RUXIENCE [Suspect]
     Active Substance: RITUXIMAB-PVVR
     Indication: RHEUMATOID ARTHRITIS
     Dosage: ALTERNATIVE 120 MINUTES INFUSION (2HRS), FIRST COURSE
     Dates: start: 2020
  4. MYCOPHENOLATE MOFETIL. [Concomitant]
     Active Substance: MYCOPHENOLATE MOFETIL
     Dosage: UNK
  5. TACROLIMUS. [Concomitant]
     Active Substance: TACROLIMUS
     Dosage: UNK
  6. METHOTREXATE. [Suspect]
     Active Substance: METHOTREXATE
     Dosage: UNK
  7. PREDNISONE. [Concomitant]
     Active Substance: PREDNISONE
     Indication: RHEUMATOID ARTHRITIS
     Dosage: 5 MG
  8. IMURAN [Concomitant]
     Active Substance: AZATHIOPRINE
     Dosage: UNK
  9. METHOTREXATE. [Suspect]
     Active Substance: METHOTREXATE
     Dosage: 1 DOSAGE FORM
     Route: 065
     Dates: start: 201410
  10. RUXIENCE [Suspect]
     Active Substance: RITUXIMAB-PVVR
     Dosage: 1000 MG EVERY OTHER WEEK
     Route: 042
     Dates: start: 20201222, end: 20210106

REACTIONS (16)
  - Pancytopenia [Unknown]
  - Lupus vulgaris [Unknown]
  - Proteinuria [Unknown]
  - Therapeutic response unexpected [Unknown]
  - Retinal vasculitis [Recovered/Resolved]
  - Rheumatoid arthritis [Unknown]
  - Musculoskeletal stiffness [Unknown]
  - Joint swelling [Unknown]
  - Neuropsychiatric lupus [Unknown]
  - Mouth ulceration [Unknown]
  - Haematuria [Unknown]
  - Vasculitic ulcer [Unknown]
  - Rash [Unknown]
  - Cytopenia [Recovered/Resolved]
  - Arthralgia [Unknown]
  - Double stranded DNA antibody positive [Unknown]
